FAERS Safety Report 15289786 (Version 8)
Quarter: 2019Q1

REPORT INFORMATION
  Report Type: Spontaneous
  Country: US (occurrence: US)
  Receive Date: 20180817
  Receipt Date: 20190116
  Transmission Date: 20190417
  Serious: Yes (Hospitalization, Other)
  Sender: FDA-Public Use
  Company Number: US-IMPAX LABORATORIES, INC-2018-IPXL-02423

PATIENT
  Age: 79 Year
  Sex: Female

DRUGS (16)
  1. GOCOVRI [Suspect]
     Active Substance: AMANTADINE
     Dosage: 68.5 MG, ONE AT BEDTIME
     Route: 048
     Dates: start: 20180518, end: 2018
  2. GOCOVRI [Suspect]
     Active Substance: AMANTADINE
     Dosage: 68.5 MG, ONE AT BEDTIME
     Route: 048
     Dates: start: 20180705, end: 20180815
  3. GOCOVRI [Suspect]
     Active Substance: AMANTADINE
     Dosage: 68.5 MG, ONE AT BEDTIME
     Route: 048
     Dates: start: 20180921, end: 20181006
  4. ROBITUSSIN (GUAIFENESIN) [Concomitant]
     Active Substance: GUAIFENESIN
     Indication: PRODUCT USED FOR UNKNOWN INDICATION
     Dosage: LIQUID 20-400, UNK
     Route: 065
  5. RYTARY [Suspect]
     Active Substance: CARBIDOPA\LEVODOPA
     Indication: PARKINSON^S DISEASE
     Dosage: 23.75/95 MG, UNK
     Route: 065
  6. ACIDOPHILUS [Concomitant]
     Active Substance: LACTOBACILLUS ACIDOPHILUS
     Indication: SUPPLEMENTATION THERAPY
     Dosage: UNK
     Route: 065
  7. AMLODIPINE BESYLATE. [Concomitant]
     Active Substance: AMLODIPINE BESYLATE
     Indication: PRODUCT USED FOR UNKNOWN INDICATION
     Dosage: 2.5 MG, UNK
     Route: 065
  8. GOCOVRI [Suspect]
     Active Substance: AMANTADINE
     Indication: DYSKINESIA
     Dosage: 68.5 MG, UNK
     Route: 048
     Dates: start: 201805, end: 201805
  9. CARBIDOPA/LEVODOPA [Concomitant]
     Active Substance: CARBIDOPA\LEVODOPA
     Indication: PARKINSON^S DISEASE
     Dosage: 25/100 MG, UNK
     Route: 065
  10. GOCOVRI [Suspect]
     Active Substance: AMANTADINE
     Dosage: 68.5 MG, EVERY OTHER DAY
     Route: 048
     Dates: start: 2018, end: 2018
  11. GOCOVRI [Suspect]
     Active Substance: AMANTADINE
     Dosage: 68.5 MG, ONCE DAILY WITH TWO DAYS ON, AND ONE DAY OFF
     Route: 048
     Dates: start: 201806, end: 201806
  12. SINEMET [Suspect]
     Active Substance: CARBIDOPA\LEVODOPA
     Indication: PARKINSON^S DISEASE
     Dosage: UNK
     Route: 065
  13. METOPROLOL TARTRATE. [Concomitant]
     Active Substance: METOPROLOL TARTRATE
     Indication: PRODUCT USED FOR UNKNOWN INDICATION
     Dosage: 25 MG, UNK
     Route: 065
  14. MONUROL [Concomitant]
     Active Substance: FOSFOMYCIN TROMETHAMINE
     Indication: PRODUCT USED FOR UNKNOWN INDICATION
     Dosage: UNK
     Route: 065
  15. GOCOVRI [Suspect]
     Active Substance: AMANTADINE
     Dosage: 68.5 MG, ONCE DAILY WITH TWO DAYS ON, AND ONE DAY OFF
     Route: 048
     Dates: start: 20180605, end: 20180627
  16. TYLENOL [Concomitant]
     Active Substance: ACETAMINOPHEN
     Indication: PRODUCT USED FOR UNKNOWN INDICATION
     Dosage: 500 MG, UNK
     Route: 065

REACTIONS (42)
  - Hyperhidrosis [Not Recovered/Not Resolved]
  - Pain [Unknown]
  - Musculoskeletal discomfort [Unknown]
  - Ophthalmic herpes simplex [Recovered/Resolved]
  - Blindness transient [Recovering/Resolving]
  - Dry mouth [Not Recovered/Not Resolved]
  - Therapeutic response unexpected [Unknown]
  - Therapeutic response shortened [Unknown]
  - Lip swelling [Unknown]
  - Restlessness [Not Recovered/Not Resolved]
  - Feeling of body temperature change [Recovered/Resolved]
  - Pollakiuria [Not Recovered/Not Resolved]
  - Dystonia [Recovering/Resolving]
  - Nausea [Not Recovered/Not Resolved]
  - Eye infection [Not Recovered/Not Resolved]
  - Cataract [Recovered/Resolved]
  - Lip disorder [Unknown]
  - Poor quality sleep [Unknown]
  - Chest pain [Unknown]
  - Speech disorder [Unknown]
  - Urinary tract infection [Recovering/Resolving]
  - Fall [Unknown]
  - Adverse event [Unknown]
  - Oropharyngeal pain [Not Recovered/Not Resolved]
  - Nasopharyngitis [Not Recovered/Not Resolved]
  - Anxiety [Not Recovered/Not Resolved]
  - Blood pressure abnormal [Unknown]
  - Burning sensation [Unknown]
  - Paraesthesia [Unknown]
  - Vision blurred [Recovering/Resolving]
  - Dizziness [Unknown]
  - Malaise [Recovering/Resolving]
  - Nervousness [Not Recovered/Not Resolved]
  - Agitation [Not Recovered/Not Resolved]
  - Dyskinesia [Unknown]
  - Head discomfort [Not Recovered/Not Resolved]
  - Hallucination, auditory [Recovered/Resolved]
  - Drug interaction [Not Recovered/Not Resolved]
  - Pyrexia [Unknown]
  - Musculoskeletal chest pain [Unknown]
  - Viral infection [Not Recovered/Not Resolved]
  - Hallucination, visual [Recovered/Resolved]

NARRATIVE: CASE EVENT DATE: 2018
